FAERS Safety Report 14843394 (Version 3)
Quarter: 2018Q3

REPORT INFORMATION
  Report Type: Spontaneous
  Country: US (occurrence: US)
  Receive Date: 20180503
  Receipt Date: 20180802
  Transmission Date: 20181010
  Serious: Yes (Other)
  Sender: FDA-Public Use
  Company Number: US-PFIZER INC-2018176250

PATIENT
  Age: 23 Year
  Sex: Female
  Weight: 60.32 kg

DRUGS (2)
  1. DEPO?PROVERA [Suspect]
     Active Substance: MEDROXYPROGESTERONE ACETATE
     Indication: CONTRACEPTION
     Dosage: UNK, SINGLE (BY INJECTION ONCE)
     Dates: start: 20171212, end: 20171212
  2. AMOXICILLIN. [Concomitant]
     Active Substance: AMOXICILLIN
     Indication: EAR INFECTION
     Dosage: UNK

REACTIONS (16)
  - Depression suicidal [Not Recovered/Not Resolved]
  - Anxiety [Not Recovered/Not Resolved]
  - Breast pain [Not Recovered/Not Resolved]
  - Hormone level abnormal [Unknown]
  - Fatigue [Not Recovered/Not Resolved]
  - Weight decreased [Not Recovered/Not Resolved]
  - Chest pain [Recovered/Resolved]
  - Anaemia [Unknown]
  - Menorrhagia [Not Recovered/Not Resolved]
  - Headache [Not Recovered/Not Resolved]
  - Libido decreased [Unknown]
  - Dyspnoea [Unknown]
  - Panic attack [Unknown]
  - Nausea [Recovering/Resolving]
  - Breast disorder female [Unknown]
  - Paraesthesia [Unknown]

NARRATIVE: CASE EVENT DATE: 201712
